FAERS Safety Report 14225215 (Version 2)
Quarter: 2017Q4

REPORT INFORMATION
  Report Type: Spontaneous
  Country: US (occurrence: US)
  Receive Date: 20171127
  Receipt Date: 20171208
  Transmission Date: 20180321
  Serious: Yes (Other)
  Sender: FDA-Public Use
  Company Number: PHEH2017US037666

PATIENT
  Sex: Male

DRUGS (2)
  1. GLEEVEC [Suspect]
     Active Substance: IMATINIB MESYLATE
     Indication: PRODUCT USED FOR UNKNOWN INDICATION
     Dosage: 400 MG, BID
     Route: 048
     Dates: start: 20171008
  2. CALCIUM WITH VITAMIN D3 [Concomitant]
     Active Substance: CALCIUM CARBONATE\CHOLECALCIFEROL
     Indication: PRODUCT USED FOR UNKNOWN INDICATION
     Dosage: 500/400 IU MG TID (MORNING, AFTERNOON AND NIGHT)
     Route: 048

REACTIONS (6)
  - Dysgeusia [Unknown]
  - Neoplasm progression [Unknown]
  - Rash pruritic [Unknown]
  - Eye swelling [Unknown]
  - Anaemia [Unknown]
  - Fatigue [Unknown]
